FAERS Safety Report 19887064 (Version 1)
Quarter: 2021Q3

REPORT INFORMATION
  Report Type: Spontaneous
  Country: US (occurrence: US)
  Receive Date: 20210928
  Receipt Date: 20210928
  Transmission Date: 20211014
  Serious: Yes (Hospitalization)
  Sender: FDA-Public Use
  Company Number: US-STRIDES ARCOLAB LIMITED-2021SP027498

PATIENT
  Age: 67 Year
  Sex: Female

DRUGS (27)
  1. ETODOLAC. [Suspect]
     Active Substance: ETODOLAC
     Indication: PLEURITIC PAIN
     Dosage: UNK
     Route: 065
  2. OXYCODONE AND ACETAMINOPHEN [Suspect]
     Active Substance: ACETAMINOPHEN\OXYCODONE HYDROCHLORIDE
     Indication: PLEURITIC PAIN
     Dosage: UNK
     Route: 065
  3. PREGABALIN. [Suspect]
     Active Substance: PREGABALIN
     Indication: PLEURITIC PAIN
     Dosage: UNK
     Route: 065
  4. OMEPRAZOLE. [Concomitant]
     Active Substance: OMEPRAZOLE
     Indication: PROPHYLAXIS
     Dosage: UNK
     Route: 065
  5. KETOROLAC [Suspect]
     Active Substance: KETOROLAC TROMETHAMINE
     Indication: PLEURITIC PAIN
     Dosage: UNK
     Route: 065
  6. ACETAMINOPHEN. [Concomitant]
     Active Substance: ACETAMINOPHEN
     Indication: PLEURITIC PAIN
     Dosage: UNK
     Route: 065
  7. INDOMETACIN [Concomitant]
     Active Substance: INDOMETHACIN
     Indication: PLEURITIC PAIN
     Dosage: UNK
     Route: 065
  8. GABAPENTIN. [Suspect]
     Active Substance: GABAPENTIN
     Indication: PLEURITIC PAIN
     Dosage: UNK
     Route: 065
  9. KETOROLAC [Suspect]
     Active Substance: KETOROLAC TROMETHAMINE
     Dosage: 3 MILLIGRAM/HOUR
     Route: 065
  10. OXYCODONE [Suspect]
     Active Substance: OXYCODONE
     Indication: PLEURITIC PAIN
     Dosage: UNK
     Route: 065
  11. CELECOXIB. [Suspect]
     Active Substance: CELECOXIB
     Indication: PLEURITIC PAIN
     Dosage: UNK
     Route: 065
  12. NORTRIPTYLINE [Suspect]
     Active Substance: NORTRIPTYLINE
     Indication: PLEURITIC PAIN
     Dosage: UNK
     Route: 065
  13. LIDOCAINE. [Suspect]
     Active Substance: LIDOCAINE
     Indication: PLEURITIC PAIN
     Dosage: UNK
     Route: 065
  14. TRAMADOL. [Suspect]
     Active Substance: TRAMADOL
     Indication: PLEURITIC PAIN
     Dosage: UNK
     Route: 065
  15. TIZANIDINE. [Suspect]
     Active Substance: TIZANIDINE
     Indication: PLEURITIC PAIN
     Dosage: UNK
     Route: 065
  16. KETAMINE [Suspect]
     Active Substance: KETAMINE
     Indication: PLEURITIC PAIN
     Dosage: UNK
     Route: 065
  17. TRAZODONE [Suspect]
     Active Substance: TRAZODONE HYDROCHLORIDE
     Indication: PLEURITIC PAIN
     Dosage: UNK
     Route: 065
  18. DEXAMETHASONE. [Suspect]
     Active Substance: DEXAMETHASONE
     Indication: PLEURITIC PAIN
     Dosage: UNK
     Route: 065
  19. KETOROLAC [Suspect]
     Active Substance: KETOROLAC TROMETHAMINE
     Dosage: UNK
     Route: 048
  20. KETOROLAC [Suspect]
     Active Substance: KETOROLAC TROMETHAMINE
     Dosage: 3.8 MILLIGRAM/HOUR
     Route: 042
  21. ALPHA LIPOIC ACID [Suspect]
     Active Substance: .ALPHA.-LIPOIC ACID
     Indication: PLEURITIC PAIN
     Dosage: UNK
     Route: 065
  22. KETAMINE [Suspect]
     Active Substance: KETAMINE
     Dosage: UNK
     Route: 048
  23. IBUPROFEN. [Suspect]
     Active Substance: IBUPROFEN
     Indication: PLEURITIC PAIN
     Dosage: UNK
     Route: 065
  24. MORPHINE SULFATE. [Suspect]
     Active Substance: MORPHINE SULFATE
     Indication: PLEURITIC PAIN
     Dosage: UNK
     Route: 065
  25. NAPROXEN. [Suspect]
     Active Substance: NAPROXEN
     Indication: PLEURITIC PAIN
     Dosage: UNK
     Route: 065
  26. KETOROLAC [Suspect]
     Active Substance: KETOROLAC TROMETHAMINE
     Dosage: UNK, IV BOLUS
     Route: 042
  27. METHADONE [Suspect]
     Active Substance: METHADONE HYDROCHLORIDE
     Indication: PLEURITIC PAIN
     Dosage: UNK
     Route: 065

REACTIONS (2)
  - Drug ineffective [Unknown]
  - Off label use [Unknown]
